FAERS Safety Report 8230521-5 (Version None)
Quarter: 2012Q1

REPORT INFORMATION
  Report Type: 
  Country: None (occurrence: None)
  Receive Date: 20120323
  Receipt Date: 20120315
  Transmission Date: 20120608
  Serious: Yes (Hospitalization)
  Sender: FDA-Public Use
  Company Number: US-US-EMD SERONO, INC.-7120232

PATIENT
  Sex: Female

DRUGS (2)
  1. REBIF [Suspect]
     Indication: PRODUCT USED FOR UNKNOWN INDICATION
     Route: 058
     Dates: start: 20100820
  2. ASPIRIN [Concomitant]
     Indication: PRODUCT USED FOR UNKNOWN INDICATION

REACTIONS (8)
  - GAIT DISTURBANCE [None]
  - INJECTION SITE PAIN [None]
  - PARAESTHESIA [None]
  - INJECTION SITE HAEMORRHAGE [None]
  - CENTRAL NERVOUS SYSTEM LESION [None]
  - SPEECH DISORDER [None]
  - BLADDER DISORDER [None]
  - INJECTION SITE HAEMATOMA [None]
